FAERS Safety Report 6979116-1 (Version None)
Quarter: 2010Q3

REPORT INFORMATION
  Report Type: 
  Country: None (occurrence: None)
  Receive Date: 20100913
  Receipt Date: 20100901
  Transmission Date: 20110219
  Serious: Yes (Hospitalization, Other)
  Sender: FDA-Public Use
  Company Number: PHHY2010FR01590

PATIENT
  Sex: Male

DRUGS (7)
  1. VOLTAREN [Suspect]
     Dosage: UNK
     Route: 048
     Dates: start: 20091130, end: 20091201
  2. KARDEGIC [Interacting]
     Dosage: 160 MG PER DAY
     Route: 048
     Dates: end: 20091201
  3. PREVISCAN [Interacting]
     Dosage: 5 MG PER DAY
     Route: 048
     Dates: end: 20091203
  4. LASIX [Concomitant]
  5. DIGOXIN [Concomitant]
  6. PARIET [Concomitant]
  7. NITRODERM [Concomitant]

REACTIONS (6)
  - ANAEMIA [None]
  - DRUG INTERACTION [None]
  - GASTRIC MUCOSAL LESION [None]
  - INTERNATIONAL NORMALISED RATIO INCREASED [None]
  - MELAENA [None]
  - RECTAL HAEMORRHAGE [None]
